FAERS Safety Report 5154096-2 (Version None)
Quarter: 2006Q4

REPORT INFORMATION
  Report Type: 
  Country: None (occurrence: None)
  Receive Date: 20061120
  Receipt Date: 20060901
  Transmission Date: 20070319
  Serious: Yes (Disabling)
  Sender: FDA-Public Use
  Company Number: 2006GB01587

PATIENT
  Age: 626 Month
  Sex: Female
  Weight: 83.6 kg

DRUGS (6)
  1. ARIMIDEX [Suspect]
     Indication: BREAST CANCER
     Route: 048
     Dates: start: 20051128
  2. ACTONEL [Concomitant]
     Indication: OSTEOPOROSIS
     Route: 048
     Dates: start: 20020101
  3. BISOPROL [Concomitant]
     Indication: BLOOD PRESSURE INCREASED
     Route: 048
     Dates: start: 20051101
  4. LIPANTIL [Concomitant]
     Indication: BLOOD TRIGLYCERIDES INCREASED
     Route: 048
     Dates: start: 19990101
  5. ASPIRIN [Concomitant]
     Route: 048
     Dates: start: 19990101
  6. CALCIT [Concomitant]
     Indication: OSTEOPOROSIS
     Route: 048
     Dates: start: 20000101

REACTIONS (1)
  - CARPAL TUNNEL SYNDROME [None]
